FAERS Safety Report 6023340-1 (Version None)
Quarter: 2008Q4

REPORT INFORMATION
  Report Type: 
  Country: None (occurrence: None)
  Receive Date: 20081230
  Receipt Date: 20081219
  Transmission Date: 20090506
  Serious: Yes (Other)
  Sender: FDA-Public Use
  Company Number: US-ELI_LILLY_AND_COMPANY-US200809000225

PATIENT
  Age: 70 Year
  Sex: Female

DRUGS (3)
  1. BYETTA [Suspect]
     Indication: TYPE 2 DIABETES MELLITUS
     Dosage: 5 UG, 2/D
     Dates: start: 20071220, end: 20080101
  2. BYETTA [Suspect]
     Dosage: 10 UG, 2/D
     Dates: start: 20080101, end: 20080827
  3. BYETTA [Suspect]
     Dosage: UNK, UNKNOWN
     Dates: start: 20081212

REACTIONS (4)
  - ABDOMINAL PAIN [None]
  - BLOOD AMYLASE INCREASED [None]
  - PANCREATITIS [None]
  - WEIGHT DECREASED [None]
